FAERS Safety Report 5302907-X (Version None)
Quarter: 2007Q2

REPORT INFORMATION
  Report Type: 
  Country: None (occurrence: None)
  Receive Date: 20070419
  Receipt Date: 20070419
  Transmission Date: 20071010
  Serious: Yes (Hospitalization)
  Sender: FDA-Public Use
  Company Number: None

PATIENT
  Sex: Male
  Weight: 128 kg

DRUGS (13)
  1. CYCLOPHOSPHAMIDE [Suspect]
     Dosage: 1793 MG
     Dates: end: 20070221
  2. DOXORUBICIN HYDROCHLORIDE [Suspect]
     Dosage: 120 MG
     Dates: end: 20070221
  3. PREDNISONE TAB [Suspect]
     Dosage: 1250 MG
     Dates: end: 20070225
  4. RITUXIMAB (MOAB C2B8 ANTI CD20, CHIMERIC) [Suspect]
     Dosage: 896 MG
     Dates: end: 20070221
  5. VINCRISTINE SULFATE [Suspect]
     Dosage: 2 MG
     Dates: end: 20070221
  6. AMLODIPINE [Concomitant]
  7. ASPIRIN [Concomitant]
  8. COREG [Concomitant]
  9. ALLOPURINOL [Concomitant]
  10. GLUCOPHAGE [Concomitant]
  11. HYDROCHLOROTHIAZIDE [Concomitant]
  12. LOSARTAN POSTASSIUM [Concomitant]
  13. NITROGLYCERIN [Concomitant]

REACTIONS (3)
  - HYPOGLYCAEMIA [None]
  - MENTAL STATUS CHANGES [None]
  - URINARY TRACT INFECTION [None]
